FAERS Safety Report 21557356 (Version 3)
Quarter: 2022Q4

REPORT INFORMATION
  Report Type: Spontaneous
  Country: CL (occurrence: CL)
  Receive Date: 20221105
  Receipt Date: 20221228
  Transmission Date: 20230113
  Serious: Yes (Death, Hospitalization, Other)
  Sender: FDA-Public Use
  Company Number: CL-002147023-NVSC2022CL249502

PATIENT
  Age: 74 Year
  Sex: Female

DRUGS (1)
  1. GLIVEC [Suspect]
     Active Substance: IMATINIB MESYLATE
     Indication: Acute lymphocytic leukaemia
     Dosage: 300 MG (3 X 100 MG TABLETS)
     Route: 065

REACTIONS (4)
  - Colon cancer [Fatal]
  - Anaemia [Unknown]
  - Rectal haemorrhage [Unknown]
  - Metastasis [Unknown]

NARRATIVE: CASE EVENT DATE: 20210101
